FAERS Safety Report 15955978 (Version 1)
Quarter: 2019Q1

REPORT INFORMATION
  Report Type: Spontaneous
  Country: US (occurrence: US)
  Receive Date: 20190213
  Receipt Date: 20190213
  Transmission Date: 20190417
  Serious: No
  Sender: FDA-Public Use
  Company Number: US-BAYER-2019-030327

PATIENT
  Sex: Female

DRUGS (11)
  1. ESCITALOPRAM [Concomitant]
     Active Substance: ESCITALOPRAM OXALATE
  2. CLONAZEPAM. [Concomitant]
     Active Substance: CLONAZEPAM
  3. LANTUS [Concomitant]
     Active Substance: INSULIN GLARGINE
  4. BETASERON [Suspect]
     Active Substance: INTERFERON BETA-1B
     Indication: MULTIPLE SCLEROSIS
     Dosage: 0.25 MG, QOD
     Route: 058
     Dates: start: 20150225
  5. FLUTICASONE. [Concomitant]
     Active Substance: FLUTICASONE
  6. FLUOCINONIDE. [Concomitant]
     Active Substance: FLUOCINONIDE
  7. LORATADINE. [Concomitant]
     Active Substance: LORATADINE
  8. AMLODIPINE BENAZEPRIL [Concomitant]
     Active Substance: AMLODIPINE BESYLATE\BENAZEPRIL HYDROCHLORIDE
  9. CRESTOR [Concomitant]
     Active Substance: ROSUVASTATIN CALCIUM
  10. PANTOPRAZOLE [Concomitant]
     Active Substance: PANTOPRAZOLE
  11. ALPRAZOLAM. [Concomitant]
     Active Substance: ALPRAZOLAM

REACTIONS (1)
  - Product dose omission [None]
